FAERS Safety Report 21663753 (Version 3)
Quarter: 2023Q1

REPORT INFORMATION
  Report Type: Spontaneous
  Country: US (occurrence: US)
  Receive Date: 20221130
  Receipt Date: 20230104
  Transmission Date: 20230418
  Serious: No
  Sender: FDA-Public Use
  Company Number: US-PFIZER INC-202201324852

PATIENT
  Age: 14 Year
  Sex: Male
  Weight: 41.28 kg

DRUGS (1)
  1. GENOTROPIN [Suspect]
     Active Substance: SOMATROPIN
     Indication: Growth disorder
     Dosage: 1.4 DOSE UNITS NOT SPECIFIED WITH THE PEN GIVE A SHOT ONCE A DAY IN HIS BUTT MOSTLY
     Dates: start: 2018, end: 2021

REACTIONS (2)
  - Device breakage [Unknown]
  - Device power source issue [Unknown]
